FAERS Safety Report 4472772-1 (Version None)
Quarter: 2004Q4

REPORT INFORMATION
  Report Type: 
  Country: None (occurrence: None)
  Receive Date: 20041008
  Receipt Date: 20040922
  Transmission Date: 20050328
  Serious: Yes (Hospitalization)
  Sender: FDA-Public Use
  Company Number: US_0409106096

PATIENT
  Age: 77 Year
  Sex: Male

DRUGS (5)
  1. ALIMTA [Suspect]
     Indication: BRONCHIOLOALVEOLAR CARCINOMA
     Dosage: 500 MG/M2
     Dates: start: 20040624
  2. GEMCITABINE HYDROCHLORIDE [Concomitant]
  3. CARBOPLATIN [Concomitant]
  4. IRESSA [Concomitant]
  5. DOCETAXEL [Concomitant]

REACTIONS (7)
  - CHILLS [None]
  - DIARRHOEA [None]
  - FUNGAL INFECTION [None]
  - LUNG CONSOLIDATION [None]
  - PULMONARY TOXICITY [None]
  - PYREXIA [None]
  - THERAPEUTIC RESPONSE DECREASED [None]
